FAERS Safety Report 9603735 (Version 4)
Quarter: 2013Q4

REPORT INFORMATION
  Report Type: Spontaneous
  Country: US (occurrence: US)
  Receive Date: 20131007
  Receipt Date: 20131205
  Transmission Date: 20140711
  Serious: Yes (Other)
  Sender: FDA-Public Use
  Company Number: US-ASTELLAS-2013US010267

PATIENT
  Age: 57 Year
  Sex: Female

DRUGS (4)
  1. MYRBETRIQ [Suspect]
     Indication: PRODUCT USED FOR UNKNOWN INDICATION
     Dosage: 25 MG, UID/QD
     Route: 048
     Dates: start: 20130920
  2. MYRBETRIQ [Suspect]
     Dosage: 25 MG, EVERY 14 DAYS
     Route: 048
  3. MYRBETRIQ [Suspect]
     Dosage: EVERY 2-3 DAYS
     Route: 048
  4. OTHER PLANT ALKALOIDS AND NATURAL PRODUCTS [Concomitant]
     Indication: PRODUCT USED FOR UNKNOWN INDICATION
     Dosage: UNK
     Route: 065

REACTIONS (9)
  - Inappropriate schedule of drug administration [Unknown]
  - Visual impairment [Unknown]
  - Infection [Unknown]
  - Blood pressure increased [Unknown]
  - Somnolence [Not Recovered/Not Resolved]
  - Pain in extremity [Unknown]
  - Insomnia [Unknown]
  - Pain [Unknown]
  - Headache [Unknown]
